FAERS Safety Report 4396288-6 (Version None)
Quarter: 2004Q3

REPORT INFORMATION
  Report Type: 
  Country: None (occurrence: None)
  Receive Date: 20040713
  Receipt Date: 20040607
  Transmission Date: 20050211
  Serious: Yes (Other)
  Sender: FDA-Public Use
  Company Number: US-GLAXOSMITHKLINE-A0513591A

PATIENT
  Age: 75 Year
  Sex: Female

DRUGS (5)
  1. ADVAIR DISKUS 100/50 [Suspect]
     Route: 055
  2. LEXAPRO [Suspect]
  3. MULTIVITAMIN [Concomitant]
  4. SAINT JOHNS WORT [Concomitant]
  5. LUTEIN [Concomitant]

REACTIONS (4)
  - DRUG INEFFECTIVE [None]
  - EYE HAEMORRHAGE [None]
  - MACULAR DEGENERATION [None]
  - VISUAL ACUITY REDUCED [None]
